FAERS Safety Report 15196143 (Version 1)
Quarter: 2018Q3

REPORT INFORMATION
  Report Type: Spontaneous
  Country: US (occurrence: US)
  Receive Date: 20180626
  Receipt Date: 20180626
  Transmission Date: 20181010
  Serious: Yes (Death)
  Sender: FDA-Public Use
  Company Number: None

PATIENT
  Age: 81 Year
  Sex: Female

DRUGS (9)
  1. MORPHINE SULFATE 100MG/5ML [Concomitant]
  2. DRONABINOL 5MG [Concomitant]
     Active Substance: DRONABINOL
  3. FUROSEMIDE 40 MG [Concomitant]
     Active Substance: FUROSEMIDE
  4. NORTRIPTYLINE 75 MG [Concomitant]
  5. SIMVASTATIN 20MG [Concomitant]
     Active Substance: SIMVASTATIN
  6. CAPECITABINE. [Suspect]
     Active Substance: CAPECITABINE
     Indication: NEOPLASM
     Route: 048
     Dates: start: 20180506, end: 20180618
  7. ONDANSETRON 4MG ODT [Concomitant]
  8. LORAZEPAM 1 MG [Concomitant]
     Active Substance: LORAZEPAM
  9. HYDROCODONE/APAP 5?325 MG [Concomitant]

REACTIONS (1)
  - Death [None]

NARRATIVE: CASE EVENT DATE: 20180618
